FAERS Safety Report 8295527-9 (Version None)
Quarter: 2012Q2

REPORT INFORMATION
  Report Type: 
  Country: None (occurrence: None)
  Receive Date: 20120413
  Receipt Date: 20120326
  Transmission Date: 20120825
  Serious: Yes (Hospitalization)
  Sender: FDA-Public Use
  Company Number: 2011100037

PATIENT
  Age: 45 Year
  Sex: Male

DRUGS (22)
  1. PANTOPRAZOLE [Concomitant]
  2. METFORMIN HCL [Concomitant]
  3. SPIRONOLACTONE [Suspect]
     Indication: PRODUCT USED FOR UNKNOWN INDICATION
     Dosage: 1 DOSAGE FORMS (1 DOSAGE FORMS, 1 IN 1 D)
     Dates: start: 20110504
  4. ALISKIREN (ALISKIREN FUMARATE) [Concomitant]
  5. CATAPRESSAN (CLONIDINE HYDROCHLORIDE) [Concomitant]
  6. AMLODIPINE [Concomitant]
  7. ALLOPURINOL [Concomitant]
  8. LEVEMIR [Concomitant]
  9. VILDAGLIPTIN (VILDAGLIPTIN) [Concomitant]
  10. NITROLINGUAL (NITROGLYCERIN) [Concomitant]
  11. ALEGLITAZAR (ALEGLITAZAR) [Suspect]
     Indication: CARDIOVASCULAR EVENT PROPHYLAXIS
     Dosage: LAST DOSE PRIOR TO HYPERKALAEMIA:04JUL2011, DOSE BLINDED, TEMPORARILY INTERRUPTED, FREQUENCY QD, ORA
     Route: 048
     Dates: start: 20110215
  12. ALEGLITAZAR (ALEGLITAZAR) [Suspect]
     Indication: CARDIOVASCULAR EVENT PROPHYLAXIS
     Dosage: LAST DOSE PRIOR TO HYPERKALAEMIA:04JUL2011, DOSE BLINDED, TEMPORARILY INTERRUPTED, FREQUENCY QD, ORA
     Route: 048
     Dates: start: 20100108, end: 20110509
  13. ALEGLITAZAR (ALEGLITAZAR) [Suspect]
     Indication: CARDIOVASCULAR EVENT PROPHYLAXIS
     Dosage: LAST DOSE PRIOR TO HYPERKALAEMIA:04JUL2011, DOSE BLINDED, TEMPORARILY INTERRUPTED, FREQUENCY QD, ORA
     Route: 048
     Dates: start: 20110811
  14. CLOPIDOGREL BISULFATE [Concomitant]
  15. NEBIVOLOL HCL [Concomitant]
  16. HYDROCHLOROTHIAZIDE [Concomitant]
  17. TORSEMIDE [Suspect]
     Indication: PRODUCT USED FOR UNKNOWN INDICATION
     Dosage: 10 MG (10 MG, 1 IN 1 D)
     Dates: start: 20100108, end: 20110509
  18. INEGY (EZETIMIBE, SIMVASTATIN) [Concomitant]
  19. LIPROLOG (LISPRO INSULIN) [Concomitant]
  20. OMEGA-3 ACID ETHYL ESTERS (OMEGA-3 ACID ETHYL ESTERS) [Concomitant]
  21. DIOVAN [Concomitant]
  22. ASPIRIN [Concomitant]

REACTIONS (11)
  - VOMITING [None]
  - HYPERGLYCAEMIA [None]
  - BLOOD CREATININE INCREASED [None]
  - HYPERKALAEMIA [None]
  - BLOOD CREATINE PHOSPHOKINASE INCREASED [None]
  - CAROTID ARTERY STENOSIS [None]
  - BLOOD FIBRINOGEN INCREASED [None]
  - VERTIGO [None]
  - HYPERTENSIVE CRISIS [None]
  - NAUSEA [None]
  - GAMMA-GLUTAMYLTRANSFERASE INCREASED [None]
